FAERS Safety Report 9079843 (Version 3)
Quarter: 2013Q2

REPORT INFORMATION
  Report Type: Spontaneous
  Country: US (occurrence: US)
  Receive Date: 20130130
  Receipt Date: 20130422
  Transmission Date: 20140414
  Serious: No
  Sender: FDA-Public Use
  Company Number: US-ASTRAZENECA-2013SE02028

PATIENT
  Age: 56 Year
  Sex: Female
  Weight: 63.5 kg

DRUGS (18)
  1. NEXIUM [Suspect]
     Indication: ULCER
     Route: 048
     Dates: start: 2003
  2. NEXIUM [Suspect]
     Indication: GASTROOESOPHAGEAL REFLUX DISEASE
     Route: 048
     Dates: start: 2003
  3. NEXIUM [Suspect]
     Indication: ULCER
     Route: 048
  4. NEXIUM [Suspect]
     Indication: GASTROOESOPHAGEAL REFLUX DISEASE
     Route: 048
  5. NEXIUM [Suspect]
     Indication: ULCER
     Route: 048
  6. NEXIUM [Suspect]
     Indication: GASTROOESOPHAGEAL REFLUX DISEASE
     Route: 048
  7. CRESTOR [Suspect]
     Indication: BLOOD CHOLESTEROL INCREASED
     Route: 048
     Dates: start: 2012
  8. VALIUM [Concomitant]
     Indication: MENIERE^S DISEASE
     Route: 048
  9. TRICOR [Concomitant]
     Indication: BLOOD CHOLESTEROL
     Route: 048
     Dates: start: 1995
  10. METROPROL TARTRATE [Concomitant]
     Indication: HYPERTENSION
     Route: 048
     Dates: start: 1993
  11. MECLIZINE [Concomitant]
     Indication: ABDOMINAL DISCOMFORT
     Route: 048
     Dates: start: 2003
  12. REMADINE [Concomitant]
     Indication: ABDOMINAL DISCOMFORT
     Route: 048
     Dates: start: 1998
  13. GLIMEPIRIDE [Concomitant]
     Indication: DIABETES MELLITUS
     Route: 048
     Dates: start: 1998
  14. CLOPIDGREL [Concomitant]
     Indication: ANTICOAGULANT THERAPY
     Route: 048
     Dates: start: 1995
  15. JANUVIA [Concomitant]
     Indication: DIABETES MELLITUS
     Route: 048
     Dates: start: 2012
  16. TRIBENZOR [Concomitant]
     Indication: HYPERTENSION
     Dosage: 20/5/1, 2.5MG, TWO TIME A DAY
     Route: 048
     Dates: start: 2012
  17. AMBIEN [Concomitant]
     Indication: SLEEP DISORDER
     Route: 048
     Dates: start: 2011
  18. STOOL SOFTNER OTC [Concomitant]
     Indication: CONSTIPATION
     Dosage: DAILY
     Route: 048
     Dates: start: 201210

REACTIONS (7)
  - Irritable bowel syndrome [Unknown]
  - Osteoarthritis [Unknown]
  - Spinal osteoarthritis [Unknown]
  - Abdominal pain upper [Unknown]
  - Constipation [Unknown]
  - Drug dose omission [Unknown]
  - Drug effect incomplete [Unknown]
